FAERS Safety Report 19793402 (Version 3)
Quarter: 2021Q3

REPORT INFORMATION
  Report Type: Spontaneous
  Country: US (occurrence: US)
  Receive Date: 20210906
  Receipt Date: 20210923
  Transmission Date: 20211014
  Serious: Yes (Hospitalization, Other)
  Sender: FDA-Public Use
  Company Number: US-HIKMA PHARMACEUTICALS USA INC.-US-H14001-21-03848

PATIENT
  Age: 74 Year
  Sex: Female
  Weight: 55.8 kg

DRUGS (7)
  1. ESTROGEN [Concomitant]
     Active Substance: ESTROGENS
     Indication: HORMONE REPLACEMENT THERAPY
     Dosage: UNKNOWN
     Route: 065
     Dates: start: 1996
  2. PREDNISONE. [Suspect]
     Active Substance: PREDNISONE
     Indication: ACOUSTIC NEUROMA
     Dosage: UNKNOWN
     Route: 065
     Dates: start: 20210801, end: 20210816
  3. TOZINAMERAN. [Suspect]
     Active Substance: TOZINAMERAN
     Indication: COVID-19 IMMUNISATION
     Dosage: SINGLE DOSE
     Route: 030
     Dates: start: 20210119, end: 20210119
  4. TOZINAMERAN. [Suspect]
     Active Substance: TOZINAMERAN
     Dosage: SINGLE DOSE
     Route: 030
     Dates: start: 20210208, end: 20210208
  5. ZYRTEC [Concomitant]
     Active Substance: CETIRIZINE HYDROCHLORIDE
     Indication: SEASONAL ALLERGY
     Dosage: UNKNOWN
     Route: 065
     Dates: start: 2010
  6. PROTONIX [Concomitant]
     Active Substance: PANTOPRAZOLE SODIUM
     Indication: GASTROOESOPHAGEAL REFLUX DISEASE
     Dosage: UNKNOWN
     Route: 065
     Dates: start: 2010
  7. SERTRALINE [Concomitant]
     Active Substance: SERTRALINE HYDROCHLORIDE
     Indication: IRRITABLE BOWEL SYNDROME
     Dosage: UNKNOWN
     Route: 065
     Dates: start: 1993

REACTIONS (7)
  - Abdominal pain [Unknown]
  - Fall [Unknown]
  - Head injury [Unknown]
  - Facial bones fracture [Unknown]
  - Constipation [Unknown]
  - Syncope [Recovered/Resolved]
  - Face injury [Unknown]

NARRATIVE: CASE EVENT DATE: 20210816
